FAERS Safety Report 24667749 (Version 1)
Quarter: 2024Q4

REPORT INFORMATION
  Report Type: Report from Study
  Country: US (occurrence: US)
  Receive Date: 20241127
  Receipt Date: 20241127
  Transmission Date: 20250115
  Serious: Yes (Death, Other)
  Sender: TAKEDA
  Company Number: US-TAKEDA-2023TUS040124

PATIENT
  Age: 91 Year
  Sex: Female

DRUGS (6)
  1. IXAZOMIB [Suspect]
     Active Substance: IXAZOMIB
     Indication: Plasma cell myeloma
     Dosage: 3 MILLIGRAM, 1/WEEK
     Dates: start: 20230327
  2. IXAZOMIB [Suspect]
     Active Substance: IXAZOMIB
     Indication: Non-Hodgkin^s lymphoma
     Dosage: 3 MILLIGRAM
  3. IXAZOMIB [Suspect]
     Active Substance: IXAZOMIB
     Dosage: 3 MILLIGRAM
  4. IXAZOMIB [Suspect]
     Active Substance: IXAZOMIB
     Dosage: 3 MILLIGRAM
  5. POMALYST [Suspect]
     Active Substance: POMALIDOMIDE
     Indication: Plasma cell myeloma
     Dosage: UNK
  6. DARZALEX [Suspect]
     Active Substance: DARATUMUMAB
     Indication: Plasma cell myeloma
     Dosage: UNK

REACTIONS (15)
  - Death [Fatal]
  - Neutropenia [Not Recovered/Not Resolved]
  - Neuropathy peripheral [Unknown]
  - Thrombocytopenia [Unknown]
  - Headache [Not Recovered/Not Resolved]
  - Off label use [Unknown]
  - Diarrhoea [Recovered/Resolved]
  - Constipation [Not Recovered/Not Resolved]
  - Oedema peripheral [Not Recovered/Not Resolved]
  - Bronchitis [Not Recovered/Not Resolved]
  - Nausea [Not Recovered/Not Resolved]
  - Joint swelling [Unknown]
  - Blood pressure increased [Not Recovered/Not Resolved]
  - Decreased appetite [Unknown]
  - Arthralgia [Unknown]

NARRATIVE: CASE EVENT DATE: 20231227
